FAERS Safety Report 16080660 (Version 3)
Quarter: 2019Q2

REPORT INFORMATION
  Report Type: Report from Study
  Country: None (occurrence: BR)
  Receive Date: 20190315
  Receipt Date: 20190615
  Transmission Date: 20190711
  Serious: Yes (Other)
  Sender: FDA-Public Use
  Company Number: BR-ABBVIE-19K-020-2704106-00

PATIENT
  Sex: Female
  Weight: 66 kg

DRUGS (2)
  1. SINOT (AMOXICILLIN TRIHYDRATE) [Suspect]
     Active Substance: AMOXICILLIN
     Indication: TOOTH INFECTION
     Route: 065
  2. HUMIRA [Suspect]
     Active Substance: ADALIMUMAB
     Indication: RHEUMATOID ARTHRITIS
     Route: 058
     Dates: start: 20070101, end: 201901

REACTIONS (11)
  - Tooth disorder [Recovered/Resolved]
  - Post procedural inflammation [Unknown]
  - Post procedural infection [Not Recovered/Not Resolved]
  - Osteomyelitis [Unknown]
  - Diarrhoea [Recovered/Resolved]
  - Injection site erythema [Recovered/Resolved]
  - Candida infection [Recovered/Resolved]
  - Hypophagia [Unknown]
  - Post procedural discomfort [Unknown]
  - Immunodeficiency [Unknown]
  - Injection site pruritus [Recovered/Resolved]
